FAERS Safety Report 18024550 (Version 1)
Quarter: 2020Q3

REPORT INFORMATION
  Report Type: Report from Study
  Country: None (occurrence: NL)
  Receive Date: 20200714
  Receipt Date: 20200714
  Transmission Date: 20201103
  Serious: Yes (Other)
  Sender: FDA-Public Use
  Company Number: NL-ABBVIE-20K-114-3481601-00

PATIENT
  Age: 73 Year
  Sex: Male

DRUGS (2)
  1. DUODOPA [Suspect]
     Active Substance: CARBIDOPA\LEVODOPA
     Indication: PRODUCT USED FOR UNKNOWN INDICATION
     Route: 050
  2. MOVICOLON [Concomitant]
     Active Substance: POLYETHYLENE GLYCOL 3350\POTASSIUM CHLORIDE\SODIUM BICARBONATE\SODIUM CHLORIDE
     Indication: ABNORMAL FAECES

REACTIONS (19)
  - Abnormal dreams [Recovered/Resolved]
  - Weight decreased [Not Recovered/Not Resolved]
  - Stoma site discharge [Unknown]
  - Device occlusion [Unknown]
  - Device issue [Unknown]
  - Parkinsonian gait [Unknown]
  - Hallucination [Recovered/Resolved]
  - Freezing phenomenon [Unknown]
  - Gait disturbance [Unknown]
  - Therapeutic product effect decreased [Not Recovered/Not Resolved]
  - Nausea [Unknown]
  - On and off phenomenon [Unknown]
  - Device occlusion [Unknown]
  - Prostatic operation [Recovering/Resolving]
  - Procedural pain [Recovered/Resolved]
  - Abnormal faeces [Recovered/Resolved]
  - Muscle rigidity [Not Recovered/Not Resolved]
  - Malaise [Recovering/Resolving]
  - Dyskinesia [Unknown]

NARRATIVE: CASE EVENT DATE: 20191203
